FAERS Safety Report 9664989 (Version 4)
Quarter: 2013Q4

REPORT INFORMATION
  Report Type: Report from Study
  Country: RU (occurrence: RU)
  Receive Date: 20131101
  Receipt Date: 20131218
  Transmission Date: 20140711
  Serious: Yes (Life-Threatening)
  Sender: FDA-Public Use
  Company Number: RU-MERCK-2012SP030967

PATIENT
  Age: 38 Year
  Sex: Male
  Weight: 84.9 kg

DRUGS (4)
  1. PLACEBO [Suspect]
     Dosage: UNK UNK, TID
     Route: 048
     Dates: start: 20120213
  2. PEG-INTRON [Suspect]
     Indication: CHRONIC HEPATITIS C
     Dosage: TOTAL DAILY DOSE 120 ML/0.5ML QW
     Route: 058
     Dates: start: 20120116, end: 20120421
  3. PEG-INTRON [Suspect]
     Dosage: TOTAL DAILY DOSE 96 ML/0.5ML, QW
     Route: 058
     Dates: start: 20120421
  4. RIBAVIRIN [Suspect]
     Indication: CHRONIC HEPATITIS C
     Dosage: 600 MG, BID
     Route: 048
     Dates: start: 20120116

REACTIONS (1)
  - Neutropenia [Recovered/Resolved]
